FAERS Safety Report 5271832-5 (Version None)
Quarter: 2007Q1

REPORT INFORMATION
  Report Type: 
  Country: None (occurrence: None)
  Receive Date: 20070316
  Receipt Date: 20070228
  Transmission Date: 20070707
  Serious: Yes (Other)
  Sender: FDA-Public Use
  Company Number: 2007US000456

PATIENT
  Age: 85 Year
  Sex: Female

DRUGS (2)
  1. AMBISOME [Suspect]
     Indication: PNEUMONIA FUNGAL
     Dosage: 100 MG, UID/QD, IV NOS
     Route: 042
     Dates: start: 20070115, end: 20070126
  2. STEROID [Concomitant]

REACTIONS (2)
  - HYPOKALAEMIA [None]
  - PANCYTOPENIA [None]
